FAERS Safety Report 8563503-4 (Version None)
Quarter: 2012Q3

REPORT INFORMATION
  Report Type: 
  Country: None (occurrence: None)
  Receive Date: 20120802
  Receipt Date: 20120723
  Transmission Date: 20120928
  Serious: Yes (Other)
  Sender: FDA-Public Use
  Company Number: US-009507513-1206USA03268

PATIENT

DRUGS (6)
  1. EFFEXOR XR [Concomitant]
     Indication: ANXIETY
     Dosage: 75 MG, QD
  2. RED YEAST [Suspect]
     Indication: BLOOD CHOLESTEROL INCREASED
  3. STATIN (UNSPECIFIED) [Suspect]
  4. LIPITOR [Suspect]
     Indication: BLOOD CHOLESTEROL INCREASED
     Dosage: UNK UNK, QD
     Dates: start: 20070101, end: 20070101
  5. PREMPRO [Concomitant]
     Indication: HORMONE REPLACEMENT THERAPY
  6. ZOCOR [Suspect]
     Indication: BLOOD CHOLESTEROL INCREASED
     Route: 048

REACTIONS (9)
  - ADVERSE EVENT [None]
  - BLOOD CHOLESTEROL INCREASED [None]
  - PARALYSIS [None]
  - MYALGIA [None]
  - MOVEMENT DISORDER [None]
  - MUSCLE SPASMS [None]
  - HYPOKINESIA [None]
  - DRUG INEFFECTIVE [None]
  - PAIN IN EXTREMITY [None]
